FAERS Safety Report 4704160-4 (Version None)
Quarter: 2005Q2

REPORT INFORMATION
  Report Type: 
  Country: None (occurrence: None)
  Receive Date: 20050629
  Receipt Date: 20050621
  Transmission Date: 20051028
  Serious: Yes (Death, Hospitalization, Other)
  Sender: FDA-Public Use
  Company Number: ERD2003A00076

PATIENT
  Age: 65 Year
  Sex: Male

DRUGS (12)
  1. PIOGLITAZONE HCL [Suspect]
     Indication: DIABETES MELLITUS NON-INSULIN-DEPENDENT
     Dosage: 45 MG, ORAL
     Route: 048
     Dates: start: 20020426, end: 20030316
  2. HUMAN MIXTARD (HUMAN MIXTARD) [Concomitant]
  3. METFORMIN (METFORMIN) [Concomitant]
  4. MESALAMINE [Concomitant]
  5. DILTIAZEM [Concomitant]
  6. RAMIPRIL [Concomitant]
  7. ATENOLOL [Concomitant]
  8. SIMVASTATIN [Concomitant]
  9. FRUSEMIDE (FRUSEMIDE) [Concomitant]
  10. WARFARIN SODIUM [Concomitant]
  11. CLOPIDOGREL BISULFATE [Concomitant]
  12. GLYCERYL TRINITRATE (GLYCERYL TRINITRATE) [Concomitant]

REACTIONS (29)
  - ACUTE CORONARY SYNDROME [None]
  - ANGINA UNSTABLE [None]
  - BRAIN DAMAGE [None]
  - BRAIN OEDEMA [None]
  - CARDIAC DISORDER [None]
  - CARDIOMEGALY [None]
  - CEREBRAL HAEMATOMA [None]
  - CEREBRAL HAEMORRHAGE [None]
  - CEREBROVASCULAR ACCIDENT [None]
  - CHEST DISCOMFORT [None]
  - CHEST PAIN [None]
  - CHEST X-RAY ABNORMAL [None]
  - CORONARY ARTERY DISEASE [None]
  - DEPRESSED LEVEL OF CONSCIOUSNESS [None]
  - ELECTROCARDIOGRAM ABNORMAL [None]
  - ELECTROCARDIOGRAM ST SEGMENT DEPRESSION [None]
  - GENERAL PHYSICAL HEALTH DETERIORATION [None]
  - HEMIPLEGIA [None]
  - HYDROCEPHALUS [None]
  - HYPERTENSION [None]
  - INTERNATIONAL NORMALISED RATIO DECREASED [None]
  - INTRACRANIAL PRESSURE INCREASED [None]
  - POST PROCEDURAL COMPLICATION [None]
  - PULMONARY OEDEMA [None]
  - PULMONARY VASCULAR DISORDER [None]
  - PUPILLARY REFLEX IMPAIRED [None]
  - TRANSIENT ISCHAEMIC ATTACK [None]
  - VASODILATATION [None]
  - VENTRICULAR DYSFUNCTION [None]
